FAERS Safety Report 7167268-2 (Version None)
Quarter: 2010Q4

REPORT INFORMATION
  Report Type: 
  Country: None (occurrence: None)
  Receive Date: 20101216
  Receipt Date: 20101206
  Transmission Date: 20110411
  Serious: Yes (Death, Other)
  Sender: FDA-Public Use
  Company Number: US-MPIJNJ-2010-05748

PATIENT
  Sex: Male
  Weight: 115.19 kg

DRUGS (10)
  1. VELCADE [Suspect]
     Indication: MULTIPLE MYELOMA
     Dosage: 1.3 MG/M2, CYCLIC
     Route: 040
     Dates: start: 20100608, end: 20101105
  2. BENDAMUSTINE [Suspect]
     Indication: MULTIPLE MYELOMA
     Dosage: 80 MG/M2, CYCLIC
     Route: 040
     Dates: start: 20100608, end: 20101029
  3. DEXAMETHASONE [Suspect]
     Indication: MULTIPLE MYELOMA
     Dosage: 40 MG, CYCLIC
     Route: 048
     Dates: start: 20100608, end: 20101029
  4. ALLOPURINOL [Concomitant]
     Indication: PROPHYLAXIS
     Dosage: 100 MG, QD
     Dates: start: 20100101
  5. COZAAR [Concomitant]
     Indication: HYPERTENSION
     Dosage: 25 MG, UNK
  6. CRESTOR [Concomitant]
     Indication: HYPERCHOLESTEROLAEMIA
     Dosage: 10 MG, QD
  7. NEURONTIN [Concomitant]
     Indication: NEUROPATHY PERIPHERAL
     Dosage: 1200 MG, TID
     Dates: start: 20100827
  8. ZOMETA [Concomitant]
     Indication: OSTEOPOROSIS
     Dosage: 4 MG, MONTHLY
     Dates: start: 20100928
  9. DILTIAZEM [Concomitant]
     Indication: ATRIAL FIBRILLATION
     Dosage: 240 MG, QD
     Dates: start: 20101103
  10. COUMADIN [Concomitant]
     Indication: ATRIAL FIBRILLATION
     Dosage: 5 MG, UNK
     Dates: start: 20101103

REACTIONS (3)
  - ATRIAL FIBRILLATION [None]
  - CARDIAC ARREST [None]
  - RESPIRATORY ARREST [None]
